FAERS Safety Report 20807156 (Version 2)
Quarter: 2022Q2

REPORT INFORMATION
  Report Type: Spontaneous
  Country: FR (occurrence: FR)
  Receive Date: 20220510
  Receipt Date: 20220518
  Transmission Date: 20220721
  Serious: Yes (Death, Other)
  Sender: FDA-Public Use
  Company Number: FR-LUPIN PHARMACEUTICALS INC.-2022-06659

PATIENT
  Age: 40 Year
  Sex: Female

DRUGS (25)
  1. VORICONAZOLE [Suspect]
     Active Substance: VORICONAZOLE
     Indication: Aspergillus infection
     Dosage: UNK
     Route: 065
  2. RITUXIMAB [Concomitant]
     Active Substance: RITUXIMAB
     Indication: Lymphoma
     Dosage: UNK, INFUSION; FIRST LINE THERAPY ; FOR 4 WEEKS
     Route: 065
     Dates: start: 201802
  3. RITUXIMAB [Concomitant]
     Active Substance: RITUXIMAB
     Dosage: UNK, SECOND LINE THERAPY
     Route: 065
     Dates: end: 201808
  4. RITUXIMAB [Concomitant]
     Active Substance: RITUXIMAB
     Dosage: UNK, THIRD-LINE CHEMOTHERAPY
     Route: 065
     Dates: start: 201902
  5. RITUXIMAB [Concomitant]
     Active Substance: RITUXIMAB
     Dosage: UNK, BRIDGING CHEMOTHERAPY
     Route: 065
     Dates: start: 201906
  6. METHOTREXATE [Concomitant]
     Active Substance: METHOTREXATE
     Indication: Lymphoma
     Dosage: UNK, SECOND LINE THERAPY
     Route: 037
     Dates: end: 201808
  7. CYTARABINE [Concomitant]
     Active Substance: CYTARABINE
     Indication: Lymphoma
     Dosage: UNK, SECOND LINE THERAPY
     Route: 065
     Dates: end: 201808
  8. CYTARABINE [Concomitant]
     Active Substance: CYTARABINE
     Dosage: UNK, RECEIVED AFTER AUTOLOGOUS STEM CELL TRANSPLANTATION
     Route: 065
     Dates: start: 2019
  9. VINCRISTINE [Concomitant]
     Active Substance: VINCRISTINE
     Indication: Lymphoma
     Dosage: UNK, SECOND LINE THERAPY
     Route: 065
     Dates: end: 201808
  10. DOXORUBICIN [Concomitant]
     Active Substance: DOXORUBICIN
     Indication: Lymphoma
     Dosage: UNK, SECOND LINE THERAPY
     Route: 065
     Dates: end: 201808
  11. CYCLOPHOSPHAMIDE [Concomitant]
     Active Substance: CYCLOPHOSPHAMIDE
     Indication: Lymphoma
     Dosage: UNK, SECOND LINE THERAPY
     Route: 065
     Dates: end: 201808
  12. CYCLOPHOSPHAMIDE [Concomitant]
     Active Substance: CYCLOPHOSPHAMIDE
     Dosage: UNK, LYMPHODEPLETIVE CONDITIONING
     Route: 065
     Dates: start: 201906
  13. PREDNISOLONE [Concomitant]
     Active Substance: PREDNISOLONE
     Indication: Lymphoma
     Dosage: UNK, SECOND LINE CHEMOTHERAPY
     Route: 065
     Dates: end: 201808
  14. PREDNISOLONE [Concomitant]
     Active Substance: PREDNISOLONE
     Dosage: 20 MILLIGRAM, QD
     Route: 065
  15. PREDNISOLONE [Concomitant]
     Active Substance: PREDNISOLONE
     Dosage: 20 MILLIGRAM, QD
     Route: 065
     Dates: start: 2019
  16. IFOSFAMIDE [Concomitant]
     Active Substance: IFOSFAMIDE
     Indication: Lymphoma
     Dosage: UNK, THIRD-LINE CHEMOTHERAPY
     Route: 065
     Dates: start: 201902
  17. CARBOPLATIN [Concomitant]
     Active Substance: CARBOPLATIN
     Indication: Lymphoma
     Dosage: UNK, THIRD-LINE CHEMOTHERAPY
     Route: 065
     Dates: start: 201902
  18. ETOPOSIDE [Concomitant]
     Active Substance: ETOPOSIDE
     Indication: Lymphoma
     Dosage: UNK, THIRD-LINE CHEMOTHERAPY
     Route: 065
     Dates: start: 201902
  19. ETOPOSIDE [Concomitant]
     Active Substance: ETOPOSIDE
     Dosage: UNK, RECEIVED AFTER AUTOLOGOUS STEM CELL TRANSPLANTATION
     Route: 065
     Dates: start: 2019
  20. CARMUSTINE [Concomitant]
     Active Substance: CARMUSTINE
     Indication: Lymphoma
     Dosage: UNK, RECEIVED AFTER AUTOLOGOUS STEM CELL TRANSPLANTATION
     Route: 065
     Dates: start: 2019
  21. MELPHALAN [Concomitant]
     Active Substance: MELPHALAN
     Indication: Lymphoma
     Dosage: UNK, RECEIVED AFTER AUTOLOGOUS STEM CELL TRANSPLANTATION
     Route: 065
     Dates: start: 2019
  22. KYMRIAH [Concomitant]
     Active Substance: TISAGENLECLEUCEL
     Indication: Lymphoma
     Dosage: UNK, INFUSION
     Route: 065
     Dates: start: 201907
  23. DEXAMETHASONE [Concomitant]
     Active Substance: DEXAMETHASONE
     Indication: Immunosuppressant drug therapy
     Dosage: UNK, BRIDGING CHEMOTHERAPY
     Route: 065
     Dates: start: 201906
  24. TACROLIMUS [Concomitant]
     Active Substance: TACROLIMUS
     Indication: Immunosuppressant drug therapy
     Dosage: 8 MILLIGRAM, BID, TROUGH LEVEL 5.4 NG/ML
  25. FLUDARABINE [Concomitant]
     Active Substance: FLUDARABINE PHOSPHATE
     Indication: Product used for unknown indication
     Dosage: UNK, LYMPHODEPLETIVE CONDITIONING
     Route: 065
     Dates: start: 201906

REACTIONS (1)
  - Drug ineffective [Fatal]
